FAERS Safety Report 21688705 (Version 1)
Quarter: 2022Q4

REPORT INFORMATION
  Report Type: Spontaneous
  Country: RU (occurrence: None)
  Receive Date: 20221206
  Receipt Date: 20221206
  Transmission Date: 20230112
  Serious: Yes (Death, Hospitalization)
  Sender: FDA-Public Use
  Company Number: RU-ROCHE-3227831

PATIENT
  Weight: 15.6 kg

DRUGS (2)
  1. RISDIPLAM [Suspect]
     Active Substance: RISDIPLAM
     Indication: Spinal muscular atrophy
     Route: 065
     Dates: start: 20210701
  2. RISDIPLAM [Suspect]
     Active Substance: RISDIPLAM
     Indication: Tracheostomy

REACTIONS (3)
  - COVID-19 [Fatal]
  - Sepsis [Unknown]
  - Malabsorption [Unknown]
